FAERS Safety Report 4368103-8 (Version None)
Quarter: 2004Q2

REPORT INFORMATION
  Report Type: 
  Country: None (occurrence: None)
  Receive Date: 20040602
  Receipt Date: 20030919
  Transmission Date: 20050107
  Serious: Yes (Hospitalization)
  Sender: FDA-Public Use
  Company Number: US-AMGEN-US048404

PATIENT
  Sex: Female

DRUGS (2)
  1. ENBREL [Suspect]
     Indication: RHEUMATOID ARTHRITIS
     Route: 058
     Dates: start: 20030730, end: 20031030
  2. PREDNISONE TAB [Concomitant]
     Dates: end: 20031009

REACTIONS (8)
  - ALOPECIA [None]
  - CONDITION AGGRAVATED [None]
  - DRUG INEFFECTIVE [None]
  - HAIR GROWTH ABNORMAL [None]
  - HIRSUTISM [None]
  - PRURITUS [None]
  - RHEUMATOID ARTHRITIS [None]
  - UTERINE LEIOMYOMA [None]
